FAERS Safety Report 7993963-9 (Version None)
Quarter: 2011Q4

REPORT INFORMATION
  Report Type: 
  Country: None (occurrence: None)
  Receive Date: 20111220
  Receipt Date: 20111208
  Transmission Date: 20120403
  Serious: Yes (Hospitalization)
  Sender: FDA-Public Use
  Company Number: US-BAYER-2011-040458

PATIENT
  Age: 24 Year
  Sex: Female
  Weight: 83 kg

DRUGS (3)
  1. YAZ [Suspect]
     Indication: ORAL CONTRACEPTION
     Dosage: UNK
     Route: 048
     Dates: start: 20090201, end: 20100101
  2. CELEXA [Concomitant]
     Indication: DEPRESSION
     Dosage: 20 MG, QD
     Route: 048
     Dates: start: 20090701, end: 20100401
  3. LEXAPRO [Concomitant]
     Indication: DEPRESSION
     Dosage: 10 MG, QD
     Route: 048
     Dates: start: 20090301, end: 20090501

REACTIONS (10)
  - ABDOMINAL PAIN [None]
  - ANXIETY [None]
  - EMOTIONAL DISTRESS [None]
  - PANCREATITIS [None]
  - BILE DUCT STONE [None]
  - BILIARY COLIC [None]
  - CHOLECYSTITIS ACUTE [None]
  - CHOLELITHIASIS [None]
  - DISCOMFORT [None]
  - PAIN [None]
